FAERS Safety Report 16761530 (Version 1)
Quarter: 2019Q3

REPORT INFORMATION
  Report Type: Spontaneous
  Country: US (occurrence: US)
  Receive Date: 20190830
  Receipt Date: 20190830
  Transmission Date: 20191005
  Serious: Yes (Other)
  Sender: FDA-Public Use
  Company Number: PHEH2019US035514

PATIENT
  Sex: Female

DRUGS (2)
  1. METHOTREXATE. [Suspect]
     Active Substance: METHOTREXATE
     Indication: GESTATIONAL TROPHOBLASTIC TUMOUR
     Dosage: UNK
     Route: 037
  2. CABOZANTINIB [Suspect]
     Active Substance: CABOZANTINIB
     Indication: GESTATIONAL TROPHOBLASTIC TUMOUR
     Dosage: UNK
     Route: 065
     Dates: start: 201509, end: 201510

REACTIONS (3)
  - Disease recurrence [Unknown]
  - Headache [Unknown]
  - Intestinal mass [Unknown]

NARRATIVE: CASE EVENT DATE: 201508
